FAERS Safety Report 8418524-9 (Version None)
Quarter: 2012Q2

REPORT INFORMATION
  Report Type: 
  Country: None (occurrence: None)
  Receive Date: 20120607
  Receipt Date: 20120601
  Transmission Date: 20120825
  Serious: Yes (Death)
  Sender: FDA-Public Use
  Company Number: IT-BAYER-2012-054816

PATIENT
  Age: 51 Year
  Sex: Male

DRUGS (6)
  1. VALSARTAN [Concomitant]
     Indication: HYPERTENSION
     Dosage: DAILY DOSE 160 MG
     Route: 048
  2. HUMALOG [Concomitant]
     Indication: DIABETES MELLITUS
     Dosage: DAILY DOSE 34 DF
     Route: 058
  3. RAMIPRIL [Concomitant]
     Indication: HYPERTENSION
     Dosage: DAILY DOSE 10 MG
     Route: 048
  4. OMEPRAZOLE [Concomitant]
     Dosage: DAILY DOSE 20 MG
     Route: 048
  5. ASPIRIN [Suspect]
     Dosage: 100 MG, QD
     Route: 048
     Dates: start: 20070101, end: 20110114
  6. LANTUS [Concomitant]
     Indication: DIABETES MELLITUS
     Dosage: DAILY DOSE 14 DF
     Route: 058

REACTIONS (1)
  - CEREBRAL HAEMORRHAGE [None]
